FAERS Safety Report 5035281-7 (Version None)
Quarter: 2006Q2

REPORT INFORMATION
  Report Type: 
  Country: None (occurrence: None)
  Receive Date: 20060622
  Receipt Date: 20060622
  Transmission Date: 20061013
  Serious: Yes (Hospitalization)
  Sender: FDA-Public Use
  Company Number: None

PATIENT
  Sex: Female
  Weight: 18 kg

DRUGS (4)
  1. DEXAMETHASONE TAB [Suspect]
     Dosage: 60 MG
  2. MERCAPTOPURINE [Suspect]
  3. METHOTREXATE [Suspect]
     Dosage: 12 MG
  4. VINCRISTINE SULFATE [Suspect]
     Dosage: 3 MG

REACTIONS (11)
  - BLOOD PRESSURE DECREASED [None]
  - CAPILLARY DISORDER [None]
  - COMA [None]
  - DISSEMINATED INTRAVASCULAR COAGULATION [None]
  - HEPATIC ENZYME INCREASED [None]
  - HEPATIC FAILURE [None]
  - OXYGEN SATURATION DECREASED [None]
  - PERIPHERAL COLDNESS [None]
  - PYREXIA [None]
  - RESPIRATORY DISTRESS [None]
  - SEPSIS [None]
